FAERS Safety Report 6745212-7 (Version None)
Quarter: 2010Q2

REPORT INFORMATION
  Report Type: 
  Country: None (occurrence: None)
  Receive Date: 20100528
  Receipt Date: 20100521
  Transmission Date: 20101027
  Serious: Yes (Other)
  Sender: FDA-Public Use
  Company Number: US-BIOGENIDEC-2009BI031099

PATIENT
  Age: 23 Year
  Sex: Female

DRUGS (2)
  1. AVONEX [Suspect]
     Indication: MULTIPLE SCLEROSIS
     Route: 030
     Dates: start: 20081115, end: 20090715
  2. PRENATAL VITAMINS [Concomitant]
     Indication: SUPPLEMENTATION THERAPY

REACTIONS (1)
  - PLACENTA PRAEVIA [None]
